FAERS Safety Report 23312706 (Version 3)
Quarter: 2025Q4

REPORT INFORMATION
  Report Type: Spontaneous
  Country: US (occurrence: US)
  Receive Date: 20231219
  Receipt Date: 20251015
  Transmission Date: 20260118
  Serious: Yes (Other)
  Sender: APOTEX
  Company Number: US-APOTEX-2023AP018149

PATIENT
  Age: 74 Year
  Sex: Male

DRUGS (1)
  1. BORTEZOMIB [Suspect]
     Active Substance: BORTEZOMIB
     Indication: Plasma cell myeloma
     Dosage: 20.8 MILLIGRAM/SQ. METER, B.I.WK.
     Route: 058

REACTIONS (1)
  - Autonomic neuropathy [Unknown]
